FAERS Safety Report 8433901-8 (Version None)
Quarter: 2012Q2

REPORT INFORMATION
  Report Type: 
  Country: None (occurrence: None)
  Receive Date: 20120323
  Receipt Date: 20110620
  Transmission Date: 20120825
  Serious: Yes (Other)
  Sender: FDA-Public Use
  Company Number: 163-21880-11062990

PATIENT
  Age: 56 Year
  Sex: Male

DRUGS (4)
  1. REVLIMID [Suspect]
     Indication: MULTIPLE MYELOMA
     Dosage: 25 MG, 1 IN 1 D, PO,  15 MG, 1 IN 1 D, PO,  10 MG, DAILY X 28 DAYS, PO
     Route: 048
     Dates: start: 20090201
  2. REVLIMID [Suspect]
     Indication: MULTIPLE MYELOMA
     Dosage: 25 MG, 1 IN 1 D, PO,  15 MG, 1 IN 1 D, PO,  10 MG, DAILY X 28 DAYS, PO
     Route: 048
     Dates: start: 20110601
  3. REVLIMID [Suspect]
     Indication: MULTIPLE MYELOMA
     Dosage: 25 MG, 1 IN 1 D, PO,  15 MG, 1 IN 1 D, PO,  10 MG, DAILY X 28 DAYS, PO
     Route: 048
     Dates: start: 20090801, end: 20091001
  4. REVLIMID [Suspect]
     Indication: MULTIPLE MYELOMA
     Dosage: 25 MG, 1 IN 1 D, PO,  15 MG, 1 IN 1 D, PO,  10 MG, DAILY X 28 DAYS, PO
     Route: 048
     Dates: start: 20110501, end: 20110601

REACTIONS (1)
  - RED BLOOD CELL COUNT DECREASED [None]
